FAERS Safety Report 5738344-3 (Version None)
Quarter: 2008Q2

REPORT INFORMATION
  Report Type: 
  Country: None (occurrence: None)
  Receive Date: 20080513
  Receipt Date: 20080429
  Transmission Date: 20081010
  Serious: Yes (Disabling)
  Sender: FDA-Public Use
  Company Number: APP200800148

PATIENT
  Age: 42 Year
  Sex: Female

DRUGS (7)
  1. SENSORCAINE [Suspect]
     Indication: MUSCULOSKELETAL PAIN
     Dosage: SEE IMAGE
     Dates: start: 20030910, end: 20030910
  2. SENSORCAINE [Suspect]
     Indication: MUSCULOSKELETAL PAIN
     Dosage: SEE IMAGE
     Dates: start: 20030910, end: 20030910
  3. SENSORCAINE [Suspect]
     Indication: MUSCULOSKELETAL PAIN
     Dosage: SEE IMAGE
     Dates: start: 20030910
  4. XYLOCAINE W/ EPINEPHRENE [Suspect]
     Indication: MUSCULOSKELETAL PAIN
     Dosage: 30 ML, RIGHT SHOULDER PRE-OPERATIVE, INJECTION
     Dates: start: 20030910, end: 20030910
  5. I-FLOW PAIN PUMP [Suspect]
     Indication: MUSCULOSKELETAL PAIN
     Dates: start: 20030703
  6. DONJOY PAINBUSTER [Suspect]
     Indication: MUSCULOSKELETAL PAIN
     Dates: start: 20030910
  7. ANCEF [Concomitant]

REACTIONS (2)
  - CHONDROLYSIS [None]
  - MUSCULOSKELETAL PAIN [None]
